FAERS Safety Report 5296987-8 (Version None)
Quarter: 2007Q1

REPORT INFORMATION
  Report Type: 
  Country: None (occurrence: None)
  Receive Date: 20070201
  Receipt Date: 20061002
  Transmission Date: 20070707
  Serious: No
  Sender: FDA-Public Use
  Company Number: 2006PV022398

PATIENT
  Age: 47 Year
  Sex: Female
  Weight: 81.6475 kg

DRUGS (4)
  1. BYETTA [Suspect]
     Indication: DIABETES MELLITUS NON-INSULIN-DEPENDENT
     Dosage: SEE IMAGE
     Route: 058
     Dates: start: 20060906, end: 20060920
  2. BYETTA [Suspect]
     Indication: DIABETES MELLITUS NON-INSULIN-DEPENDENT
     Dosage: SEE IMAGE
     Route: 058
     Dates: start: 20060921
  3. METFORMIN HCL [Concomitant]
  4. AMARYL [Concomitant]

REACTIONS (10)
  - BLOOD GLUCOSE DECREASED [None]
  - DRUG INEFFECTIVE FOR UNAPPROVED INDICATION [None]
  - EYE DISORDER [None]
  - INJECTION SITE BRUISING [None]
  - INJECTION SITE HAEMORRHAGE [None]
  - INJECTION SITE PAIN [None]
  - MUSCLE TIGHTNESS [None]
  - MYALGIA [None]
  - NAUSEA [None]
  - VOMITING [None]
